FAERS Safety Report 13408700 (Version 1)
Quarter: 2017Q2

REPORT INFORMATION
  Report Type: Spontaneous
  Country: US (occurrence: US)
  Receive Date: 20170406
  Receipt Date: 20170406
  Transmission Date: 20170830
  Serious: Yes (Disabling, Other)
  Sender: FDA-Public Use
  Company Number: None

PATIENT
  Age: 68 Year
  Sex: Female
  Weight: 54 kg

DRUGS (5)
  1. CALCIUM [Concomitant]
     Active Substance: CALCIUM
  2. FLUTICASONE (FLONASE) [Concomitant]
  3. VITAMIN D2 [Concomitant]
     Active Substance: ERGOCALCIFEROL
  4. PROLIA [Suspect]
     Active Substance: DENOSUMAB
     Indication: OSTEOPOROSIS
     Dosage: OTHER FREQUENCY:6 MONTH INTERVALS;?
     Route: 058
     Dates: start: 20130131, end: 20160131
  5. MULTIVTIAMIN [Concomitant]

REACTIONS (5)
  - Fracture nonunion [None]
  - Quality of life decreased [None]
  - Atypical fracture [None]
  - Ulna fracture [None]
  - Pathological fracture [None]

NARRATIVE: CASE EVENT DATE: 20160505
